FAERS Safety Report 18347115 (Version 1)
Quarter: 2020Q4

REPORT INFORMATION
  Report Type: Spontaneous
  Country: DE (occurrence: DE)
  Receive Date: 20201006
  Receipt Date: 20201006
  Transmission Date: 20210114
  Serious: Yes (Life-Threatening, Hospitalization, Other)
  Sender: FDA-Public Use
  Company Number: DE-CHEPLA-C20202882

PATIENT
  Age: 30 Year
  Sex: Female
  Weight: 49 kg

DRUGS (3)
  1. TRIMETHOPRIM/SULFAMETHOXAZOL [Concomitant]
     Active Substance: SULFAMETHOXAZOLE\TRIMETHOPRIM
     Indication: PROPHYLAXIS
     Dosage: 15MG TRIMETHOPRIM/KG/DAY
  2. GANCICLOVIR. [Suspect]
     Active Substance: GANCICLOVIR
     Indication: PNEUMONIA CYTOMEGALOVIRAL
  3. PIPERACILLIN/TAZOBACTAM [Concomitant]
     Active Substance: PIPERACILLIN SODIUM\TAZOBACTAM SODIUM
     Indication: PROPHYLAXIS
     Dosage: 15MG TRIMETHOPRIM/KG/DAY

REACTIONS (2)
  - Drug ineffective [Unknown]
  - Acute respiratory distress syndrome [Recovered/Resolved with Sequelae]
